FAERS Safety Report 4713383-X (Version None)
Quarter: 2005Q3

REPORT INFORMATION
  Report Type: 
  Country: None (occurrence: None)
  Receive Date: 20050713
  Receipt Date: 20050524
  Transmission Date: 20060218
  Serious: Yes (Other)
  Sender: FDA-Public Use
  Company Number: PHNR2005AU00903

PATIENT
  Age: 53 Year
  Sex: Female

DRUGS (1)
  1. CLOZARIL [Suspect]
     Indication: SCHIZOPHRENIA
     Dosage: UNK, UNK
     Dates: start: 20050510, end: 20050602

REACTIONS (4)
  - CARDIAC ARREST [None]
  - ECHOCARDIOGRAM ABNORMAL [None]
  - LUNG DISORDER [None]
  - TROPONIN INCREASED [None]
